FAERS Safety Report 5213622-5 (Version None)
Quarter: 2007Q1

REPORT INFORMATION
  Report Type: 
  Country: None (occurrence: None)
  Receive Date: 20070119
  Receipt Date: 20070110
  Transmission Date: 20070707
  Serious: Yes (Life-Threatening, Hospitalization, Disabling, Other)
  Sender: FDA-Public Use
  Company Number: US-PFIZER INC-2004065552

PATIENT
  Sex: Male

DRUGS (20)
  1. GABAPENTIN [Suspect]
     Indication: NEUROPATHY
     Route: 065
  2. GABAPENTIN [Suspect]
     Indication: PAIN
  3. GABAPENTIN [Suspect]
     Indication: NEURALGIA
  4. KLONOPIN [Suspect]
     Indication: PAIN
     Route: 065
  5. PERCOCET [Suspect]
     Indication: PAIN
     Dosage: TEXT:3 TABLETS
     Route: 065
  6. LORCET-HD [Suspect]
     Indication: PAIN
     Route: 065
  7. LORCET-HD [Suspect]
     Indication: NEUROPATHY
  8. LORCET-HD [Suspect]
     Indication: NEURALGIA
  9. PROTONIX [Concomitant]
     Route: 065
  10. XALATAN [Concomitant]
     Route: 065
  11. NEXIUM [Concomitant]
     Route: 065
  12. GEMFIBROZIL [Concomitant]
     Route: 065
  13. PRAVACHOL [Concomitant]
     Route: 065
  14. FLONASE [Concomitant]
     Route: 065
  15. GAVISCON [Concomitant]
     Route: 065
  16. ALTERNAGEL [Concomitant]
     Route: 065
  17. SOMA [Concomitant]
  18. PROSCAR [Concomitant]
  19. ACTIFED [Concomitant]
  20. ATROVENT [Concomitant]

REACTIONS (18)
  - ABDOMINAL PAIN [None]
  - ABSCESS [None]
  - COAGULOPATHY [None]
  - COLON OPERATION [None]
  - DEFORMITY [None]
  - DEPRESSION [None]
  - DISABILITY [None]
  - DRUG INEFFECTIVE [None]
  - GUN SHOT WOUND [None]
  - HAEMORRHAGE [None]
  - HAEMOTHORAX [None]
  - HYPOTENSION [None]
  - INJURY [None]
  - OVERDOSE [None]
  - PAIN [None]
  - SPLENECTOMY [None]
  - STAPHYLOCOCCAL INFECTION [None]
  - SUICIDE ATTEMPT [None]
